FAERS Safety Report 20837913 (Version 4)
Quarter: 2022Q2

REPORT INFORMATION
  Report Type: Spontaneous
  Country: NO (occurrence: None)
  Receive Date: 20220517
  Receipt Date: 20220606
  Transmission Date: 20220720
  Serious: Yes (Other)
  Sender: FDA-Public Use
  Company Number: NO-ROCHE-3098108

PATIENT
  Sex: Female

DRUGS (20)
  1. RITUXIMAB [Suspect]
     Active Substance: RITUXIMAB
     Indication: Diffuse large B-cell lymphoma
     Dosage: 6 COURSES OF CHOP AND 8 COURSES OF RITUXIMAB
     Route: 042
     Dates: start: 20190627, end: 20191212
  2. RITUXIMAB [Suspect]
     Active Substance: RITUXIMAB
     Dosage: FOURTH LINE OF TREATMENT WHICH INCLUDED 3 CYCLES, 6TH LINE SYSTEMIC TREATMENT,
     Route: 042
     Dates: start: 20220119, end: 20220317
  3. RITUXIMAB [Suspect]
     Active Substance: RITUXIMAB
     Dosage: 6 UNITS OF RITUXIMAB 550 MG IV WITH CHOP
     Route: 042
     Dates: start: 20190725, end: 20191202
  4. RITUXIMAB [Suspect]
     Active Substance: RITUXIMAB
     Dosage: 6 UNITS OF RITUXIMAB 550 MG WITH BENDAMUSTINE AND POLATUZUMAB VEDOTIN
     Route: 042
     Dates: start: 20220119, end: 202204
  5. RITUXIMAB [Suspect]
     Active Substance: RITUXIMAB
     Dosage: 4 X RITUXIMAB MONOTHERAPY
     Route: 042
     Dates: start: 20181130, end: 20181212
  6. MABTHERA [Suspect]
     Active Substance: RITUXIMAB
     Indication: Diffuse large B-cell lymphoma
     Dosage: MONOTHERAPY IN 2018 X 5, AT A DOSE OF 1400 MG
     Route: 058
     Dates: start: 20181130, end: 20190627
  7. POLATUZUMAB VEDOTIN [Suspect]
     Active Substance: POLATUZUMAB VEDOTIN
     Indication: Diffuse large B-cell lymphoma
     Dosage: FOURTH LINE OF TREATMENT WHICH INCLUDED 3 CYCLES, 6TH LINE SYSTEMIC TREATMENT,
     Route: 065
     Dates: start: 20220119, end: 20220317
  8. POLATUZUMAB VEDOTIN [Suspect]
     Active Substance: POLATUZUMAB VEDOTIN
     Dosage: 6 UNITS OF RITUXIMAB WITH BENDAMUSTINE AND POLATUZUMAB VEDOTIN 100 MG
     Route: 065
     Dates: start: 20220119, end: 202204
  9. IFOSFAMIDE [Concomitant]
     Active Substance: IFOSFAMIDE
     Indication: Diffuse large B-cell lymphoma
     Dosage: SECOND LINE OF TREATMENT WITH 7 CYCLES OF IME
     Route: 065
     Dates: start: 20200629, end: 20201119
  10. METHOTREXATE [Concomitant]
     Active Substance: METHOTREXATE
     Indication: Diffuse large B-cell lymphoma
     Dosage: SECOND LINE OF TREATMENT WITH 7 CYCLES OF IME
     Route: 065
     Dates: start: 20200629, end: 20201119
  11. ETOPOSIDE [Concomitant]
     Active Substance: ETOPOSIDE
     Indication: Diffuse large B-cell lymphoma
     Dosage: SECOND LINE OF TREATMENT WITH 7 CYCLES OF IME
     Route: 065
     Dates: start: 20200629, end: 20201119
  12. BENDAMUSTINE [Concomitant]
     Active Substance: BENDAMUSTINE
     Indication: Diffuse large B-cell lymphoma
     Dosage: FOURTH LINE OF TREATMENT, 6TH LINE SYSTEMIC TREATMENT,
     Dates: start: 20220119, end: 20220317
  13. BENDAMUSTINE [Concomitant]
     Active Substance: BENDAMUSTINE
     Dosage: 6 UNITS OF RITUXIMAB WITH BENDAMUSTINE AND POLATUZUMAB VEDOTIN
     Dates: start: 20220119, end: 202204
  14. CYCLOPHOSPHAMIDE [Concomitant]
     Active Substance: CYCLOPHOSPHAMIDE
     Dosage: RITUXIMAB IN COMBINATION WITH CHOP AND 2 R-MONO
     Dates: start: 20190725, end: 20191212
  15. DOXORUBICIN [Concomitant]
     Active Substance: DOXORUBICIN
     Dosage: RITUXIMAB IN COMBINATION WITH CHOP AND 2 R-MONO
     Dates: start: 20190725, end: 20191212
  16. VINCRISTINE [Concomitant]
     Active Substance: VINCRISTINE
     Dosage: RITUXIMAB IN COMBINATION WITH CHOP AND 2 R-MONO
     Dates: start: 20190725, end: 20191202
  17. PREDNISOLONE [Concomitant]
     Active Substance: PREDNISOLONE
     Dosage: RITUXIMAB IN COMBINATION WITH CHOP AND 2 R-MONO
     Dates: start: 20190725, end: 20191212
  18. DEXAMETHASONE [Concomitant]
     Active Substance: DEXAMETHASONE
     Dates: start: 20201209, end: 20210305
  19. CYTARABINE [Concomitant]
     Active Substance: CYTARABINE
     Dates: start: 20201209, end: 20210305
  20. CISPLATIN [Concomitant]
     Active Substance: CISPLATIN
     Dates: start: 20201209, end: 20210305

REACTIONS (3)
  - Disease progression [Unknown]
  - Blood lactate dehydrogenase increased [Unknown]
  - Metastasis [Unknown]
